FAERS Safety Report 19878424 (Version 1)
Quarter: 2021Q3

REPORT INFORMATION
  Report Type: Spontaneous
  Country: US (occurrence: US)
  Receive Date: 20210923
  Receipt Date: 20210923
  Transmission Date: 20211014
  Serious: No
  Sender: FDA-Public Use
  Company Number: None

PATIENT
  Age: 54 Year
  Sex: Male
  Weight: 95 kg

DRUGS (5)
  1. TIZANIDINE (TIZANIDINE HCL 4MG TAB) [Suspect]
     Active Substance: TIZANIDINE HYDROCHLORIDE
     Indication: PAIN
     Dates: start: 20050713
  2. TIZANIDINE (TIZANIDINE HCL 4MG TAB) [Suspect]
     Active Substance: TIZANIDINE HYDROCHLORIDE
     Indication: MUSCLE SPASMS
  3. QUETIAPINE (QUETIAPINE FUMARATE 300MG TAB) [Suspect]
     Active Substance: QUETIAPINE FUMARATE
     Indication: BIPOLAR I DISORDER
     Dates: start: 20121116, end: 20210810
  4. TIZANIDINE (TIZANIDINE HCL 4MG TAB) [Suspect]
     Active Substance: TIZANIDINE HYDROCHLORIDE
     Indication: MUSCLE SPASMS
     Dates: start: 20050713
  5. QUETIAPINE (QUETIAPINE FUMARATE 300MG TAB) [Suspect]
     Active Substance: QUETIAPINE FUMARATE
     Indication: DEPRESSION
     Dates: start: 20121116, end: 20210810

REACTIONS (3)
  - Hypotension [None]
  - Anaemia [None]
  - Bradycardia [None]

NARRATIVE: CASE EVENT DATE: 20210817
